FAERS Safety Report 6825272-5 (Version None)
Quarter: 2010Q3

REPORT INFORMATION
  Report Type: 
  Country: None (occurrence: None)
  Receive Date: 20100708
  Receipt Date: 20061130
  Transmission Date: 20110219
  Serious: No
  Sender: FDA-Public Use
  Company Number: US-PFIZER INC-2006152022

PATIENT
  Sex: Female
  Weight: 58.97 kg

DRUGS (6)
  1. CHANTIX [Suspect]
     Dates: start: 20061114
  2. MONTELUKAST SODIUM [Concomitant]
     Indication: MULTIPLE ALLERGIES
  3. ZOLOFT [Concomitant]
  4. VYTORIN [Concomitant]
  5. ALLEGRA D 24 HOUR [Concomitant]
     Indication: MULTIPLE ALLERGIES
  6. LEVOXYL [Concomitant]
     Indication: THYROID DISORDER

REACTIONS (4)
  - ABNORMAL DREAMS [None]
  - AGITATION [None]
  - INSOMNIA [None]
  - MIDDLE INSOMNIA [None]
